FAERS Safety Report 9950110 (Version 1)
Quarter: 2014Q1

REPORT INFORMATION
  Report Type: Report from Study
  Country: US (occurrence: US)
  Receive Date: 20140304
  Receipt Date: 20140304
  Transmission Date: 20141002
  Serious: No
  Sender: FDA-Public Use
  Company Number: US-ABBVIE-13P-163-1069238-00

PATIENT
  Sex: Male

DRUGS (6)
  1. HUMIRA [Suspect]
     Indication: REITER^S SYNDROME
  2. HUMIRA [Suspect]
     Indication: CROHN^S DISEASE
  3. VICODIN [Concomitant]
     Indication: PRODUCT USED FOR UNKNOWN INDICATION
  4. DOCUSATE [Concomitant]
     Indication: PRODUCT USED FOR UNKNOWN INDICATION
  5. ZANTAC [Concomitant]
     Indication: PRODUCT USED FOR UNKNOWN INDICATION
  6. AMBIEN [Concomitant]
     Indication: PRODUCT USED FOR UNKNOWN INDICATION

REACTIONS (2)
  - Furuncle [Recovered/Resolved]
  - Off label use [Not Recovered/Not Resolved]
